FAERS Safety Report 14776098 (Version 2)
Quarter: 2018Q2

REPORT INFORMATION
  Report Type: Spontaneous
  Country: FR (occurrence: FR)
  Receive Date: 20180418
  Receipt Date: 20180503
  Transmission Date: 20180711
  Serious: Yes (Hospitalization)
  Sender: FDA-Public Use
  Company Number: FR-INDIVIOR LIMITED-INDV-110351-2018

PATIENT
  Age: 48 Year
  Sex: Female

DRUGS (1)
  1. SUBUTEX [Suspect]
     Active Substance: BUPRENORPHINE HYDROCHLORIDE
     Indication: PRODUCT USED FOR UNKNOWN INDICATION
     Dosage: UNK
     Route: 042
     Dates: start: 201709

REACTIONS (6)
  - Drug dependence [Recovering/Resolving]
  - Intentional product use issue [Recovered/Resolved]
  - Spinal cord compression [Recovered/Resolved]
  - Intervertebral discitis [Recovering/Resolving]
  - Intentional product misuse [Recovered/Resolved]
  - Back pain [Recovering/Resolving]

NARRATIVE: CASE EVENT DATE: 201707
